FAERS Safety Report 7563485-8 (Version None)
Quarter: 2011Q2

REPORT INFORMATION
  Report Type: 
  Country: None (occurrence: None)
  Receive Date: 20110622
  Receipt Date: 20110618
  Transmission Date: 20111010
  Serious: Yes (Other)
  Sender: FDA-Public Use
  Company Number: IN-PFIZER INC-2011136552

PATIENT
  Age: 37 Year
  Sex: Female

DRUGS (1)
  1. DEPO-MEDROL [Suspect]
     Indication: PLANTAR FASCIITIS
     Dosage: 40 MG, 1X/DAY
     Route: 014
     Dates: start: 20110501, end: 20110501

REACTIONS (3)
  - INJECTION SITE PAIN [None]
  - INJECTION SITE SWELLING [None]
  - ABSCESS [None]
